FAERS Safety Report 20034127 (Version 2)
Quarter: 2022Q1

REPORT INFORMATION
  Report Type: Spontaneous
  Country: US (occurrence: US)
  Receive Date: 20211104
  Receipt Date: 20220118
  Transmission Date: 20220423
  Serious: No
  Sender: FDA-Public Use
  Company Number: US-PFIZER INC-2021562584

PATIENT
  Age: 68 Year
  Sex: Female

DRUGS (1)
  1. IBRANCE [Suspect]
     Active Substance: PALBOCICLIB
     Dosage: (1 TAB ORALLY ONCE A DAY FOR 14 DAYS FOLLOWED BY 14 DAYS OFF)
     Route: 048

REACTIONS (2)
  - Off label use [Unknown]
  - Infection [Unknown]
